FAERS Safety Report 6147924-5 (Version None)
Quarter: 2009Q2

REPORT INFORMATION
  Report Type: 
  Country: None (occurrence: None)
  Receive Date: 20090408
  Receipt Date: 20090327
  Transmission Date: 20091009
  Serious: Yes (Other)
  Sender: FDA-Public Use
  Company Number: SE-PFIZER INC-2009162480

PATIENT

DRUGS (3)
  1. DALACIN [Suspect]
     Indication: SUBCUTANEOUS ABSCESS
     Dates: start: 20080104, end: 20080113
  2. DALACIN [Suspect]
     Indication: FURUNCLE
  3. DALACIN [Suspect]
     Indication: CARBUNCLE

REACTIONS (1)
  - GASTROINTESTINAL HAEMORRHAGE [None]
